FAERS Safety Report 8921213 (Version 1)
Quarter: 2012Q4

REPORT INFORMATION
  Report Type: 
  Country: US (occurrence: US)
  Receive Date: 20121123
  Receipt Date: 20121123
  Transmission Date: 20130627
  Serious: Yes (Other)
  Sender: FDA-Public Use
  Company Number: US-AMGEN-USASP2012075389

PATIENT
  Sex: Female

DRUGS (4)
  1. ENBREL [Suspect]
     Indication: PRODUCT USED FOR UNKNOWN INDICATION
     Dosage: UNK
  2. REMICADE [Concomitant]
     Dosage: UNK
  3. CIMZIA [Concomitant]
     Dosage: UNK
  4. ACTEMRA [Concomitant]
     Dosage: UNK

REACTIONS (4)
  - Multiple sclerosis [Unknown]
  - Adverse drug reaction [Unknown]
  - Nasal disorder [Unknown]
  - Muscle twitching [Unknown]
